FAERS Safety Report 5150708-8 (Version None)
Quarter: 2006Q4

REPORT INFORMATION
  Report Type: 
  Country: None (occurrence: None)
  Receive Date: 20061114
  Receipt Date: 20061102
  Transmission Date: 20070319
  Serious: Yes (Hospitalization, Other)
  Sender: FDA-Public Use
  Company Number: PT-BRISTOL-MYERS SQUIBB COMPANY-13571047

PATIENT
  Age: 49 Year
  Sex: Male

DRUGS (1)
  1. ERBITUX [Suspect]
     Indication: SQUAMOUS CELL CARCINOMA
     Route: 041
     Dates: start: 20060503, end: 20060503

REACTIONS (3)
  - GASTRIC ULCER PERFORATION [None]
  - PERITONITIS [None]
  - PNEUMOPERITONEUM [None]
